FAERS Safety Report 22119120 (Version 1)
Quarter: 2023Q1

REPORT INFORMATION
  Report Type: Spontaneous
  Country: US (occurrence: None)
  Receive Date: 20230320
  Receipt Date: 20230320
  Transmission Date: 20230417
  Serious: Yes (Hospitalization)
  Sender: FDA-Public Use
  Company Number: None

PATIENT
  Age: 66 Year
  Sex: Female

DRUGS (1)
  1. COPAXONE [Suspect]
     Active Substance: GLATIRAMER ACETATE
     Dosage: 40MG OTHER SUBCUTANEOUS
     Route: 058
     Dates: start: 2003

REACTIONS (7)
  - Localised infection [None]
  - Injection site reaction [None]
  - Urticaria [None]
  - Lipoatrophy [None]
  - Dehydration [None]
  - Visual impairment [None]
  - Visual impairment [None]

NARRATIVE: CASE EVENT DATE: 20220608
